FAERS Safety Report 10091767 (Version 1)
Quarter: 2014Q2

REPORT INFORMATION
  Report Type: Spontaneous
  Country: US (occurrence: US)
  Receive Date: 20140421
  Receipt Date: 20140421
  Transmission Date: 20141212
  Serious: No
  Sender: FDA-Public Use
  Company Number: US-PURDUE-USA-2004-0016689

PATIENT
  Age: 55 Year
  Sex: Male

DRUGS (2)
  1. OXYFAST CONCENTRATE 20 MG/ML [Suspect]
     Indication: PAIN
  2. MUSCLE RELAXANTS [Concomitant]

REACTIONS (1)
  - Drug ineffective [Unknown]
